FAERS Safety Report 9238140 (Version 1)
Quarter: 2013Q2

REPORT INFORMATION
  Report Type: Spontaneous
  Country: GB (occurrence: GB)
  Receive Date: 20130418
  Receipt Date: 20130418
  Transmission Date: 20140414
  Serious: Yes (Other)
  Sender: FDA-Public Use
  Company Number: PHFR2013GB002216

PATIENT
  Age: 19 Year
  Sex: Male

DRUGS (2)
  1. CLIMAVAL [Suspect]
     Indication: TRANSGENDER HORMONAL THERAPY
  2. CLIMAVAL [Suspect]
     Indication: OFF LABEL USE

REACTIONS (1)
  - Arrhythmia [Unknown]
